FAERS Safety Report 5920006-0 (Version None)
Quarter: 2008Q4

REPORT INFORMATION
  Report Type: 
  Country: None (occurrence: None)
  Receive Date: 20081014
  Receipt Date: 20081001
  Transmission Date: 20090506
  Serious: Yes (Hospitalization, Other)
  Sender: FDA-Public Use
  Company Number: 230256K08USA

PATIENT
  Age: 57 Year
  Sex: Female

DRUGS (3)
  1. REBIF [Suspect]
     Indication: MULTIPLE SCLEROSIS
     Dosage: 22 MCG, 3 IN 1 WEEKS, SUBCUTANEOUS
     Route: 058
     Dates: start: 20070112
  2. TORADP; (KETOROLAC TROMETHAMINE) [Concomitant]
  3. EXTRA STRENGTH TYLENOL [Concomitant]

REACTIONS (5)
  - ASPIRATION [None]
  - CHONDROPATHY [None]
  - CYST [None]
  - OESOPHAGEAL DISORDER [None]
  - WRIST FRACTURE [None]
